FAERS Safety Report 7823380-3 (Version None)
Quarter: 2011Q4

REPORT INFORMATION
  Report Type: 
  Country: None (occurrence: None)
  Receive Date: 20111019
  Receipt Date: 20111005
  Transmission Date: 20120403
  Serious: Yes (Other)
  Sender: FDA-Public Use
  Company Number: IT-AMGEN-ITASP2011051618

PATIENT
  Age: 51 Year
  Sex: Male

DRUGS (5)
  1. GRANULOKINE [Suspect]
     Indication: NEUTROPENIA
     Dosage: 7200 MUG, UNK
     Route: 058
     Dates: start: 20070617, end: 20071204
  2. BLEOPRIM [Suspect]
     Dosage: 190 MG, UNK
     Route: 042
     Dates: start: 20070606, end: 20070929
  3. DACARBAZINE [Concomitant]
     Dosage: 9640 MG, UNK
     Route: 042
     Dates: start: 20070606, end: 20071125
  4. VINBLASTINE SULFATE [Concomitant]
     Dosage: 158 MG, UNK
     Route: 042
     Dates: start: 20070606, end: 20071125
  5. DOXORUBICIN HCL [Concomitant]
     Dosage: 653 MG, UNK
     Route: 042
     Dates: start: 20070606, end: 20071125

REACTIONS (1)
  - INTERSTITIAL LUNG DISEASE [None]
